FAERS Safety Report 9661472 (Version 2)
Quarter: 2013Q4

REPORT INFORMATION
  Report Type: Spontaneous
  Country: US (occurrence: US)
  Receive Date: 20131031
  Receipt Date: 20131031
  Transmission Date: 20140711
  Serious: No
  Sender: FDA-Public Use
  Company Number: US-PURDUE-USA-2010-0055440

PATIENT
  Sex: Male

DRUGS (1)
  1. OXYCONTIN (NDA 22-272) [Suspect]
     Indication: PAIN
     Dosage: 60 MG, Q8- 12H
     Route: 048
     Dates: start: 20101012

REACTIONS (5)
  - Medication residue present [Unknown]
  - Dyspepsia [Unknown]
  - Rash [Unknown]
  - Abdominal pain upper [Unknown]
  - Abdominal distension [Unknown]
